FAERS Safety Report 14965017 (Version 7)
Quarter: 2021Q3

REPORT INFORMATION
  Report Type: Report from Study
  Country: FR (occurrence: FR)
  Receive Date: 20180601
  Receipt Date: 20210902
  Transmission Date: 20211014
  Serious: Yes (Life-Threatening, Hospitalization, Other)
  Sender: FDA-Public Use
  Company Number: FR-JNJFOC-20180538018

PATIENT
  Age: 66 Year
  Sex: Female
  Weight: 50 kg

DRUGS (11)
  1. RIFATER [Concomitant]
     Active Substance: ISONIAZID\PYRAZINAMIDE\RIFAMPIN
     Route: 048
     Dates: start: 20170124, end: 20170228
  2. ATORVASTATIN [Concomitant]
     Active Substance: ATORVASTATIN
     Dates: start: 2012, end: 201712
  3. METHOTREXATE. [Suspect]
     Active Substance: METHOTREXATE
     Indication: PRODUCT USED FOR UNKNOWN INDICATION
     Route: 048
     Dates: start: 2012, end: 201702
  4. RISEDRONATE SODIUM. [Concomitant]
     Active Substance: RISEDRONATE SODIUM
     Dates: start: 201806, end: 20210525
  5. ZYMAD [Concomitant]
     Active Substance: CHOLECALCIFEROL
     Dates: start: 201806, end: 20210525
  6. PERINDOPRIL [Concomitant]
     Active Substance: PERINDOPRIL
     Dates: start: 202010, end: 20210525
  7. STELARA [Suspect]
     Active Substance: USTEKINUMAB
     Indication: PSORIASIS
     Route: 058
     Dates: start: 20170227, end: 20170327
  8. RIFINAH [Concomitant]
     Active Substance: ISONIAZID\RIFAMPIN
     Dosage: 300 MG/150 MG
     Route: 048
     Dates: start: 20170228, end: 20170321
  9. CLARELUX [Concomitant]
     Active Substance: CLOBETASOL PROPIONATE
     Dates: start: 20201102, end: 202011
  10. LEVOTHYROX [Concomitant]
     Active Substance: LEVOTHYROXINE
     Route: 048
     Dates: start: 1997
  11. STELARA [Suspect]
     Active Substance: USTEKINUMAB
     Route: 058
     Dates: start: 20170327, end: 20180528

REACTIONS (2)
  - Invasive ductal breast carcinoma [Recovered/Resolved]
  - Intraductal proliferative breast lesion [Recovered/Resolved]

NARRATIVE: CASE EVENT DATE: 20180220
